FAERS Safety Report 15534901 (Version 2)
Quarter: 2018Q4

REPORT INFORMATION
  Report Type: Spontaneous
  Country: GB (occurrence: GB)
  Receive Date: 20181022
  Receipt Date: 20181127
  Transmission Date: 20190205
  Serious: Yes (Life-Threatening, Hospitalization, Other)
  Sender: FDA-Public Use
  Company Number: GB-TEVA-2018-GB-966510

PATIENT
  Age: 54 Year
  Sex: Female

DRUGS (9)
  1. CASSIA [Concomitant]
  2. ZOPICLONE [Concomitant]
     Active Substance: ZOPICLONE
  3. LANSOPRAZOLE. [Concomitant]
     Active Substance: LANSOPRAZOLE
  4. SIMVASTATIN. [Concomitant]
     Active Substance: SIMVASTATIN
  5. TRAMADOL. [Suspect]
     Active Substance: TRAMADOL
     Route: 048
  6. BISOPROLOL [Concomitant]
     Active Substance: BISOPROLOL
  7. PARACETAMOL [Suspect]
     Active Substance: ACETAMINOPHEN
     Route: 048
  8. DIAZEPAM. [Concomitant]
     Active Substance: DIAZEPAM
  9. RISPERIDONE. [Concomitant]
     Active Substance: RISPERIDONE

REACTIONS (3)
  - Intentional overdose [Recovered/Resolved]
  - Renal failure [Recovered/Resolved]
  - Hepatic failure [Recovered/Resolved]
